FAERS Safety Report 4600090-7 (Version None)
Quarter: 2005Q1

REPORT INFORMATION
  Report Type: 
  Country: None (occurrence: None)
  Receive Date: 20050303
  Receipt Date: 20050216
  Transmission Date: 20050727
  Serious: Yes (Hospitalization)
  Sender: FDA-Public Use
  Company Number: DE_050215276

PATIENT
  Age: 55 Year
  Sex: Female

DRUGS (3)
  1. YENTREVE (DULOXETINE HYDROCHLORIDE) [Suspect]
     Indication: URINARY INCONTINENCE
     Dates: start: 20050127, end: 20050101
  2. LAFAMME ^JENAPHARM^ [Concomitant]
  3. BISOBLOC (BISOPROLOL FUMARATE) [Concomitant]

REACTIONS (3)
  - ANXIETY [None]
  - BLOOD PRESSURE INCREASED [None]
  - NAUSEA [None]
